FAERS Safety Report 21035013 (Version 1)
Quarter: 2022Q3

REPORT INFORMATION
  Report Type: Spontaneous
  Country: US (occurrence: US)
  Receive Date: 20220701
  Receipt Date: 20220701
  Transmission Date: 20221026
  Serious: Yes (Disabling)
  Sender: FDA-Public Use
  Company Number: US-ELI_LILLY_AND_COMPANY-US202206012147

PATIENT
  Sex: Female

DRUGS (6)
  1. BASAGLAR [Suspect]
     Active Substance: INSULIN GLARGINE
     Indication: Type 2 diabetes mellitus
     Dosage: 26 TO 30 EACH EVENING (AT NIGHT BEFORE BED)
     Route: 058
  2. BASAGLAR [Suspect]
     Active Substance: INSULIN GLARGINE
     Indication: Type 2 diabetes mellitus
     Dosage: 26 TO 30 EACH EVENING (AT NIGHT BEFORE BED)
     Route: 058
  3. BASAGLAR [Suspect]
     Active Substance: INSULIN GLARGINE
     Dosage: 26 TO 30 EACH EVENING (AT NIGHT BEFORE BED)
     Route: 058
  4. BASAGLAR [Suspect]
     Active Substance: INSULIN GLARGINE
     Dosage: 26 TO 30 EACH EVENING (AT NIGHT BEFORE BED)
     Route: 058
  5. NOVOLOG [Concomitant]
     Active Substance: INSULIN ASPART
     Indication: Type 2 diabetes mellitus
  6. ADMELOG [Concomitant]
     Active Substance: INSULIN LISPRO
     Indication: Diabetes mellitus
     Dosage: UNK

REACTIONS (2)
  - Blindness [Unknown]
  - Muscular weakness [Unknown]
